FAERS Safety Report 20784366 (Version 5)
Quarter: 2022Q3

REPORT INFORMATION
  Report Type: Spontaneous
  Country: US (occurrence: US)
  Receive Date: 20220504
  Receipt Date: 20220817
  Transmission Date: 20221026
  Serious: Yes (Hospitalization, Other)
  Sender: FDA-Public Use
  Company Number: US-PFIZER INC-202200645774

PATIENT
  Age: 60 Year
  Sex: Female
  Weight: 65.77 kg

DRUGS (2)
  1. PRISTIQ EXTENDED-RELEASE [Suspect]
     Active Substance: DESVENLAFAXINE SUCCINATE
     Indication: Depression
     Dosage: 100 MG
  2. PRISTIQ EXTENDED-RELEASE [Suspect]
     Active Substance: DESVENLAFAXINE SUCCINATE
     Indication: Anxiety
     Dosage: 50 MG, ONCE A NIGHT
     Route: 048
     Dates: start: 2012

REACTIONS (8)
  - Yawning [Unknown]
  - Back pain [Unknown]
  - Gait disturbance [Unknown]
  - Movement disorder [Unknown]
  - Feeling abnormal [Unknown]
  - Muscle spasms [Unknown]
  - Thinking abnormal [Unknown]
  - Product prescribing error [Unknown]

NARRATIVE: CASE EVENT DATE: 20220429
